FAERS Safety Report 16119802 (Version 1)
Quarter: 2019Q1

REPORT INFORMATION
  Report Type: Spontaneous
  Country: FR (occurrence: FR)
  Receive Date: 20190326
  Receipt Date: 20190326
  Transmission Date: 20190418
  Serious: Yes (Hospitalization)
  Sender: FDA-Public Use
  Company Number: FR-CANTON LABORATORIES, LLC-2064665

PATIENT
  Age: 84 Year
  Sex: Male

DRUGS (7)
  1. RIVOTRIL [Suspect]
     Active Substance: CLONAZEPAM
     Route: 048
     Dates: start: 200904
  2. LOVENOX [Concomitant]
     Active Substance: ENOXAPARIN SODIUM
     Route: 065
  3. NAPROSYN [Suspect]
     Active Substance: NAPROXEN
     Indication: PAIN
     Route: 048
     Dates: start: 200904
  4. LAROXYL (AMITRIPTYLINE HYDROCHLORID) [Suspect]
     Active Substance: AMITRIPTYLINE
     Route: 048
     Dates: start: 200904
  5. ZAMUDOL L.P. (TRAMADOL HYDROCHLORIDE) [Suspect]
     Active Substance: TRAMADOL HYDROCHLORIDE
     Route: 048
     Dates: start: 200904
  6. TRAMADOL HYDROCHLORIDE. [Suspect]
     Active Substance: TRAMADOL HYDROCHLORIDE
     Route: 048
     Dates: start: 200904
  7. LYRICA [Suspect]
     Active Substance: PREGABALIN
     Route: 048
     Dates: start: 200904

REACTIONS (7)
  - Vomiting [Unknown]
  - Overdose [Recovering/Resolving]
  - Somnolence [Unknown]
  - Blood pressure increased [Unknown]
  - Cyanosis [Unknown]
  - Respiratory distress [Unknown]
  - Tachypnoea [Unknown]

NARRATIVE: CASE EVENT DATE: 200904
